FAERS Safety Report 5069828-1 (Version None)
Quarter: 2006Q3

REPORT INFORMATION
  Report Type: 
  Country: None (occurrence: None)
  Receive Date: 20060802
  Receipt Date: 20060802
  Transmission Date: 20061208
  Serious: No
  Sender: FDA-Public Use
  Company Number: None

PATIENT
  Age: 27 Year
  Sex: Male

DRUGS (1)
  1. LISINOPRIL [Suspect]
     Dosage: 40 MG Q DAY PO
     Route: 048
     Dates: start: 20060418, end: 20060611

REACTIONS (1)
  - ANGIONEUROTIC OEDEMA [None]
